FAERS Safety Report 18662563 (Version 2)
Quarter: 2021Q1

REPORT INFORMATION
  Report Type: Spontaneous
  Country: CN (occurrence: CN)
  Receive Date: 20201224
  Receipt Date: 20210105
  Transmission Date: 20210419
  Serious: No
  Sender: FDA-Public Use
  Company Number: CN-ASTRAZENECA-2020SF70515

PATIENT
  Sex: Female
  Weight: 65 kg

DRUGS (2)
  1. BRICANYL [Suspect]
     Active Substance: TERBUTALINE SULFATE
     Route: 055
  2. PULMICORT RESPULES [Suspect]
     Active Substance: BUDESONIDE
     Route: 055

REACTIONS (2)
  - Palpitations [Recovered/Resolved]
  - Tremor [Recovered/Resolved]
